FAERS Safety Report 21151770 (Version 1)
Quarter: 2022Q3

REPORT INFORMATION
  Report Type: Spontaneous
  Country: US (occurrence: US)
  Receive Date: 20220730
  Receipt Date: 20220730
  Transmission Date: 20221027
  Serious: No
  Sender: FDA-Public Use
  Company Number: US-TEVA-2022-US-2058977

PATIENT
  Age: 2 Month
  Sex: Female

DRUGS (2)
  1. NYSTATIN [Suspect]
     Active Substance: NYSTATIN
     Indication: Rectal lesion
     Dosage: 100000 UNITS / G
     Route: 065
     Dates: start: 202207
  2. NYSTATIN [Suspect]
     Active Substance: NYSTATIN
     Indication: Infection

REACTIONS (5)
  - Infection [Unknown]
  - Rectal lesion [Unknown]
  - Drug ineffective [Unknown]
  - Product contamination physical [Unknown]
  - Poor quality product administered [Unknown]

NARRATIVE: CASE EVENT DATE: 20220701
